FAERS Safety Report 8832012 (Version 2)
Quarter: 2014Q3

REPORT INFORMATION
  Report Type: Report from Study
  Country: US (occurrence: US)
  Receive Date: 20121009
  Receipt Date: 20140904
  Transmission Date: 20150326
  Serious: Yes (Death, Hospitalization, Other)
  Sender: FDA-Public Use
  Company Number: US-ROCHE-1130921

PATIENT
  Age: 64 Year
  Sex: Female

DRUGS (1)
  1. RITUXAN [Suspect]
     Active Substance: RITUXIMAB
     Indication: CHRONIC LYMPHOCYTIC LEUKAEMIA
     Dosage: VIAL SIZE: 100MG
     Route: 042
     Dates: start: 20000427

REACTIONS (8)
  - Cough [Unknown]
  - Pyrexia [Unknown]
  - Oesophagitis [Unknown]
  - Death [Fatal]
  - Asthenia [Unknown]
  - Bone marrow failure [Unknown]
  - Post herpetic neuralgia [Unknown]
  - Neutropenia [Unknown]

NARRATIVE: CASE EVENT DATE: 20000516
